FAERS Safety Report 9159157 (Version 1)
Quarter: 2013Q1

REPORT INFORMATION
  Report Type: Spontaneous
  Country: US (occurrence: None)
  Receive Date: 20130212
  Receipt Date: 20130212
  Transmission Date: 20140127
  Serious: Yes (Hospitalization, Other)
  Sender: FDA-Public Use
  Company Number: ADR-2012-01785

PATIENT
  Sex: Male

DRUGS (1)
  1. LIORESAL [Suspect]
     Indication: MUSCLE SPASTICITY

REACTIONS (13)
  - Musculoskeletal stiffness [None]
  - Muscle spasms [None]
  - Clonus [None]
  - No therapeutic response [None]
  - Intervertebral disc degeneration [None]
  - Osteopenia [None]
  - Kyphosis [None]
  - Pulmonary fibrosis [None]
  - Renal cyst [None]
  - Device breakage [None]
  - Pulmonary fibrosis [None]
  - Device dislocation [None]
  - Muscle spasticity [None]
